FAERS Safety Report 12635608 (Version 2)
Quarter: 2016Q3

REPORT INFORMATION
  Report Type: Other
  Country: JP (occurrence: JP)
  Receive Date: 20160809
  Receipt Date: 20160822
  Transmission Date: 20161109
  Serious: Yes (Death, Hospitalization, Other)
  Sender: FDA-Public Use
  Company Number: JP-JUBILANT GENERICS LIMITED-1056073

PATIENT
  Age: 53 Year
  Sex: Female

DRUGS (7)
  1. OLANZAPINE. [Suspect]
     Active Substance: OLANZAPINE
  2. CLONAZEPAM. [Concomitant]
     Active Substance: CLONAZEPAM
  3. ROPINIROLE UNKNOWN [Suspect]
     Active Substance: ROPINIROLE
  4. BIPERIDEN [Concomitant]
     Active Substance: BIPERIDEN
  5. BROTIZOLAM [Concomitant]
     Active Substance: BROTIZOLAM
  6. LEVODOPA UNKNOWN [Suspect]
     Active Substance: LEVODOPA
  7. ROTIGOTINE UNKNOWN [Suspect]
     Active Substance: ROTIGOTINE

REACTIONS (5)
  - Dyspnoea [Fatal]
  - Respiratory dyskinesia [Fatal]
  - Oromandibular dystonia [Fatal]
  - Apnoea [Fatal]
  - Drug interaction [Fatal]

NARRATIVE: CASE EVENT DATE: 20160812
